FAERS Safety Report 5582147-X (Version None)
Quarter: 2007Q4

REPORT INFORMATION
  Report Type: 
  Country: None (occurrence: None)
  Receive Date: 20071130
  Receipt Date: 20070312
  Transmission Date: 20080405
  Serious: No
  Sender: FDA-Public Use
  Company Number: APP200700032

PATIENT

DRUGS (8)
  1. ASTRAMORPH PF [Suspect]
     Indication: POSTOPERATIVE ANALGESIA
     Dosage: (3 MG, ONCE), EPIDURAL
     Route: 008
     Dates: start: 20070309, end: 20070309
  2. PROPOFOL [Concomitant]
  3. ROPIVACAINE [Concomitant]
  4. MIDAZOLAM HCL [Concomitant]
  5. SEVOFLURANE [Concomitant]
  6. FENTANYL [Concomitant]
  7. SUCCINYLCHOLINE CHLORIDE [Concomitant]
  8. ROCURONIUM BROMIDE [Concomitant]

REACTIONS (1)
  - RESPIRATORY DEPRESSION [None]
